FAERS Safety Report 10269039 (Version 1)
Quarter: 2014Q2

REPORT INFORMATION
  Report Type: Spontaneous
  Country: US (occurrence: US)
  Receive Date: 20140630
  Receipt Date: 20140630
  Transmission Date: 20141212
  Serious: Yes (Other)
  Sender: FDA-Public Use
  Company Number: US-GILEAD-2014-0107068

PATIENT
  Sex: Female

DRUGS (2)
  1. LETAIRIS [Suspect]
     Indication: PRODUCT USED FOR UNKNOWN INDICATION
     Dosage: 10 MG, QD
     Route: 065
     Dates: start: 20110601
  2. RIOCIGUAT [Concomitant]

REACTIONS (5)
  - Vaginal haemorrhage [Unknown]
  - Vaginal discharge [Unknown]
  - Oxygen supplementation [Unknown]
  - Dyspnoea [Unknown]
  - Dizziness [Unknown]
